FAERS Safety Report 17528715 (Version 3)
Quarter: 2020Q2

REPORT INFORMATION
  Report Type: Spontaneous
  Country: PL (occurrence: PL)
  Receive Date: 20200312
  Receipt Date: 20200513
  Transmission Date: 20200713
  Serious: Yes (Other)
  Sender: FDA-Public Use
  Company Number: PL-SUN PHARMACEUTICAL INDUSTRIES LTD-2020RR-240215

PATIENT
  Age: 25 Year
  Sex: Female

DRUGS (12)
  1. VALPROIC ACID. [Suspect]
     Active Substance: VALPROIC ACID
     Indication: SEIZURE
     Dosage: UNK
     Route: 065
  2. ETHINYLOESTRADIOL/NORELGESTROMIN [Suspect]
     Active Substance: ETHINYL ESTRADIOL\NORELGESTROMIN
     Indication: AMENORRHOEA
     Dosage: UNK
     Route: 065
  3. OXCARBAZEPINE. [Suspect]
     Active Substance: OXCARBAZEPINE
     Indication: PRODUCT USED FOR UNKNOWN INDICATION
     Dosage: UNK
     Route: 065
  4. METFORMIN [Concomitant]
     Active Substance: METFORMIN HYDROCHLORIDE
     Indication: INSULIN RESISTANCE
     Dosage: UNK
     Route: 065
  5. LAMOTRIGINE. [Concomitant]
     Active Substance: LAMOTRIGINE
     Dosage: 300 MILLIGRAM DAILY;
     Route: 065
  6. TIAGABINE [Suspect]
     Active Substance: TIAGABINE
     Indication: EPILEPSY
     Dosage: DOSES INCREASING TO 20 MG DAILY ()
     Route: 065
  7. LACOSAMIDE. [Suspect]
     Active Substance: LACOSAMIDE
     Indication: EPILEPSY
     Dosage: DOSES GRADUALLY INCREASING TO 400 MG PER DAY ()
     Route: 065
  8. TOPIRAMATE. [Suspect]
     Active Substance: TOPIRAMATE
     Indication: SEIZURE
     Dosage: UNK
     Route: 048
  9. LAMOTRIGINE. [Concomitant]
     Active Substance: LAMOTRIGINE
     Indication: SEIZURE
     Dosage: GRADUALLY INCREASING DOSES UP TO 250 MG PER DAY ()
     Route: 065
  10. TIAGABINE [Suspect]
     Active Substance: TIAGABINE
     Dosage: DOSES INCREASING TO 20 MG DAILY ()
     Route: 065
  11. LEVETIRACETAM. [Suspect]
     Active Substance: LEVETIRACETAM
     Indication: PARTIAL SEIZURES
     Dosage: 3 GRAM DAILY;
     Route: 065
  12. ETHINYLOESTRADIOL/NORELGESTROMIN [Suspect]
     Active Substance: ETHINYL ESTRADIOL\NORELGESTROMIN
     Indication: HORMONE REPLACEMENT THERAPY
     Dosage: UNK
     Route: 065

REACTIONS (8)
  - Drug ineffective [Recovered/Resolved]
  - Product use in unapproved indication [Unknown]
  - Dizziness [Unknown]
  - Educational problem [Recovered/Resolved]
  - Off label use [Unknown]
  - Disturbance in attention [Recovered/Resolved]
  - Seizure [Recovering/Resolving]
  - Learning disorder [Unknown]
